FAERS Safety Report 25056378 (Version 1)
Quarter: 2025Q1

REPORT INFORMATION
  Report Type: Spontaneous
  Country: CA (occurrence: CA)
  Receive Date: 20250310
  Receipt Date: 20250310
  Transmission Date: 20250408
  Serious: Yes (Hospitalization)
  Sender: NOVO NORDISK
  Company Number: CA-NOVOPROD-1381259

PATIENT
  Sex: Female

DRUGS (1)
  1. OZEMPIC [Suspect]
     Active Substance: SEMAGLUTIDE
     Indication: Product used for unknown indication

REACTIONS (6)
  - Confusional state [Unknown]
  - Pain [Unknown]
  - Speech disorder [Unknown]
  - Depressed level of consciousness [Unknown]
  - Blood glucose decreased [Unknown]
  - Fatigue [Unknown]
